FAERS Safety Report 5655280-1 (Version None)
Quarter: 2008Q1

REPORT INFORMATION
  Report Type: 
  Country: None (occurrence: None)
  Receive Date: 20080307
  Receipt Date: 20080305
  Transmission Date: 20080703
  Serious: Yes (Congenital Anomaly)
  Sender: FDA-Public Use
  Company Number: B0510991A

PATIENT

DRUGS (6)
  1. PAXIL [Suspect]
     Indication: DEPRESSION
     Dosage: 10MG PER DAY
     Dates: start: 20070918, end: 20080111
  2. MAINTATE [Concomitant]
     Indication: DRUG USE FOR UNKNOWN INDICATION
  3. DEPAS [Concomitant]
     Indication: DRUG USE FOR UNKNOWN INDICATION
  4. GASMOTIN [Concomitant]
     Indication: DRUG USE FOR UNKNOWN INDICATION
  5. FAMOTIDINE [Concomitant]
     Indication: DRUG USE FOR UNKNOWN INDICATION
  6. CHINESE MEDICINE [Concomitant]
     Indication: DRUG USE FOR UNKNOWN INDICATION

REACTIONS (3)
  - DRUG EXPOSURE DURING PREGNANCY [None]
  - SKULL MALFORMATION [None]
  - TERATOGENICITY [None]
